FAERS Safety Report 12120334 (Version 1)
Quarter: 2016Q1

REPORT INFORMATION
  Report Type: Report from Study
  Country: BE (occurrence: BE)
  Receive Date: 20160226
  Receipt Date: 20160226
  Transmission Date: 20160526
  Serious: Yes (Other)
  Sender: FDA-Public Use
  Company Number: PHHY2015BE174447

PATIENT
  Age: 70 Year
  Sex: Female
  Weight: 67 kg

DRUGS (3)
  1. SANDOSTATIN LAR DEPOT [Suspect]
     Active Substance: OCTREOTIDE ACETATE
     Indication: NEUROENDOCRINE TUMOUR
     Dosage: 30 MG, QMO
     Route: 030
     Dates: start: 201012, end: 2012
  2. SANDOSTATIN LAR DEPOT [Suspect]
     Active Substance: OCTREOTIDE ACETATE
     Dosage: 30 MG, UNK (TWICE IN A MONTH)
     Route: 030
     Dates: start: 2012
  3. EMCONCOR [Concomitant]
     Active Substance: BISOPROLOL FUMARATE
     Indication: HYPERTENSION
     Route: 065

REACTIONS (9)
  - Ascites [Unknown]
  - Malignant neoplasm progression [Unknown]
  - Bone disorder [Unknown]
  - Metastases to liver [Unknown]
  - Hepatic lesion [Unknown]
  - Metastases to bone [Unknown]
  - Pulmonary mass [Unknown]
  - Inappropriate schedule of drug administration [Unknown]
  - Nodule [Unknown]

NARRATIVE: CASE EVENT DATE: 201012
